FAERS Safety Report 19961201 (Version 1)
Quarter: 2021Q4

REPORT INFORMATION
  Report Type: Report from Study
  Country: IN (occurrence: IN)
  Receive Date: 20211016
  Receipt Date: 20211016
  Transmission Date: 20220303
  Serious: Yes (Other)
  Sender: FDA-Public Use
  Company Number: IN-NOVARTISPH-NVSC2020IN360428

PATIENT
  Sex: Male

DRUGS (1)
  1. SECUKINUMAB [Suspect]
     Active Substance: SECUKINUMAB
     Indication: Psoriasis
     Dosage: 300 MG, QMO
     Route: 058
     Dates: start: 20200928

REACTIONS (7)
  - Liver abscess [Unknown]
  - Hepatic pain [Unknown]
  - Blood glucose increased [Unknown]
  - Dizziness [Unknown]
  - Gait inability [Unknown]
  - Pyrexia [Unknown]
  - Overdose [Unknown]
